FAERS Safety Report 6131456-4 (Version None)
Quarter: 2009Q1

REPORT INFORMATION
  Report Type: 
  Country: None (occurrence: None)
  Receive Date: 20090325
  Receipt Date: 20080721
  Transmission Date: 20090719
  Serious: No
  Sender: FDA-Public Use
  Company Number: US-BRISTOL-MYERS SQUIBB COMPANY-14269963

PATIENT
  Age: 78 Year
  Sex: Male
  Weight: 63 kg

DRUGS (6)
  1. ERBITUX [Suspect]
     Indication: METASTATIC SQUAMOUS CELL CARCINOMA
     Dosage: 5TH AND LAST TREATMENT ON 08MAY08
  2. RADIATION THERAPY [Suspect]
     Indication: METASTATIC SQUAMOUS CELL CARCINOMA
     Dosage: STOPPED AFTER 25 TREATMENT
     Dates: end: 20080508
  3. BENADRYL [Concomitant]
     Indication: PREMEDICATION
  4. TYLENOL [Concomitant]
     Indication: PREMEDICATION
  5. FLOMAX [Concomitant]
  6. TOPROL-XL [Concomitant]

REACTIONS (2)
  - RASH [None]
  - SCAB [None]
